FAERS Safety Report 4516678-8 (Version None)
Quarter: 2004Q4

REPORT INFORMATION
  Report Type: 
  Country: None (occurrence: None)
  Receive Date: 20041202
  Receipt Date: 19991222
  Transmission Date: 20050328
  Serious: Yes (Death, Hospitalization, Other)
  Sender: FDA-Public Use
  Company Number: 10217917

PATIENT
  Age: 49 Year
  Sex: Female

DRUGS (5)
  1. ENDOXAN INJ [Suspect]
     Indication: BREAST CANCER
     Route: 042
     Dates: start: 19990315, end: 19990707
  2. FARMORUBICIN [Suspect]
     Indication: BREAST CANCER
     Route: 042
     Dates: start: 19990315, end: 19990707
  3. FLUOROURACIL [Suspect]
     Indication: BREAST CANCER
     Route: 042
     Dates: start: 19990315, end: 19990707
  4. NOLVADEX [Suspect]
     Indication: BREAST CANCER
     Route: 048
     Dates: start: 19991019, end: 19991111
  5. RADIATION THERAPY [Concomitant]
     Indication: BREAST CANCER
     Dosage: 60 GY(GRAY) TO BREAST AND 45 GY ON LEFT  SUB-CLAVICLE
     Dates: start: 19990723, end: 19990917

REACTIONS (8)
  - ANURIA [None]
  - CARDIAC FAILURE [None]
  - CARDIOMYOPATHY [None]
  - DEATH [None]
  - DISSEMINATED INTRAVASCULAR COAGULATION [None]
  - HEPATIC FAILURE [None]
  - PHLEBOTHROMBOSIS [None]
  - PULMONARY EMBOLISM [None]
